FAERS Safety Report 5766676-1 (Version None)
Quarter: 2008Q2

REPORT INFORMATION
  Report Type: 
  Country: None (occurrence: None)
  Receive Date: 20080609
  Receipt Date: 20080530
  Transmission Date: 20081010
  Serious: Yes (Other)
  Sender: FDA-Public Use
  Company Number: CHPA2008US09084

PATIENT
  Age: 63 Year
  Sex: Female

DRUGS (1)
  1. MAALOX ANTIACID/ ANTIGAS MAX STR MULTI SYMPTOM (NCH)(MAGNESIUM HYDROXI [Suspect]
     Indication: STOMACH DISCOMFORT
     Dosage: 2 TSP, ONCE/SINGLE, 2 SWALLOWS ABOUT 2 TSP FROM THE BOTTLE, ORAL
     Route: 048
     Dates: start: 20080529, end: 20080529

REACTIONS (2)
  - HAEMATOCHEZIA [None]
  - WRONG TECHNIQUE IN DRUG USAGE PROCESS [None]
